FAERS Safety Report 8157714 (Version 3)
Quarter: 2014Q1

REPORT INFORMATION
  Report Type: Report from Study
  Country: US (occurrence: US)
  Receive Date: 20110927
  Receipt Date: 20140127
  Transmission Date: 20141002
  Serious: Yes (Hospitalization)
  Sender: FDA-Public Use
  Company Number: US-ACTELION-A-NJ2011-54247

PATIENT
  Age: 77 Year
  Sex: Female

DRUGS (4)
  1. TRACLEER [Suspect]
     Indication: PULMONARY ARTERIAL HYPERTENSION
     Dosage: UNK
     Route: 048
  2. MAGNESIUM CITRATE [Suspect]
     Dosage: UNK
     Dates: start: 20130417
  3. COUMADIN [Concomitant]
  4. OXYGEN [Concomitant]

REACTIONS (10)
  - Head injury [Unknown]
  - Haemorrhage [Unknown]
  - Medication error [Recovering/Resolving]
  - Hypoglycaemia [Recovering/Resolving]
  - Constipation [Recovering/Resolving]
  - Dehydration [Recovering/Resolving]
  - Gastrointestinal disorder [Recovering/Resolving]
  - Syncope [Recovering/Resolving]
  - Fatigue [Unknown]
  - Cyanosis [Unknown]
